FAERS Safety Report 19663471 (Version 1)
Quarter: 2021Q3

REPORT INFORMATION
  Report Type: Spontaneous
  Country: FR (occurrence: FR)
  Receive Date: 20210805
  Receipt Date: 20210805
  Transmission Date: 20211014
  Serious: Yes (Hospitalization, Other)
  Sender: FDA-Public Use
  Company Number: FR-JAZZ-2021-FR-013987

PATIENT

DRUGS (4)
  1. CYCLOPHOSPHAMIDE. [Suspect]
     Active Substance: CYCLOPHOSPHAMIDE
     Indication: ACUTE LYMPHOCYTIC LEUKAEMIA
     Dosage: 6000 INTERNATIONAL UNIT, AT D8, D10, D12, D20, D22 AND D24
     Route: 042
     Dates: start: 20210601
  2. DAUNORUBICIN HYDROCHLORIDE. [Suspect]
     Active Substance: DAUNORUBICIN HYDROCHLORIDE
     Indication: ACUTE LYMPHOCYTIC LEUKAEMIA
     Dosage: 6000 INTERNATIONAL UNIT, AT D8, D10, D12, D20, D22 AND D24
     Route: 042
     Dates: start: 20210601
  3. VINCRISTINE SULFATE. [Suspect]
     Active Substance: VINCRISTINE SULFATE
     Indication: ACUTE LYMPHOCYTIC LEUKAEMIA
     Dosage: 6000 INTERNATIONAL UNIT, AT D8, D10, D12, D20, D22 AND D24
     Route: 042
     Dates: start: 20210601
  4. ASPARAGINASE [Suspect]
     Active Substance: ASPARAGINASE
     Indication: ACUTE LYMPHOCYTIC LEUKAEMIA
     Dosage: 6000 INTERNATIONAL UNIT,  AT D8, D10, D12, D20, D22 AND D24
     Route: 042
     Dates: start: 20210601

REACTIONS (2)
  - Jaundice cholestatic [Not Recovered/Not Resolved]
  - Hyperbilirubinaemia [Not Recovered/Not Resolved]

NARRATIVE: CASE EVENT DATE: 202106
